FAERS Safety Report 9424032 (Version 1)
Quarter: 2013Q3

REPORT INFORMATION
  Report Type: Spontaneous
  Country: US (occurrence: US)
  Receive Date: 20130729
  Receipt Date: 20130729
  Transmission Date: 20140515
  Serious: No
  Sender: FDA-Public Use
  Company Number: US-BIOGENIDEC-2013BI068994

PATIENT
  Age: 57 Year
  Sex: Male

DRUGS (4)
  1. TYSABRI [Suspect]
     Indication: MULTIPLE SCLEROSIS
     Route: 042
     Dates: start: 20070403
  2. AVONEX [Concomitant]
     Indication: MULTIPLE SCLEROSIS
     Route: 030
     Dates: start: 20070801
  3. DURAGESIC [Concomitant]
  4. EXALGO [Concomitant]

REACTIONS (4)
  - Memory impairment [Not Recovered/Not Resolved]
  - Back pain [Not Recovered/Not Resolved]
  - Gait disturbance [Recovered/Resolved]
  - Constipation [Recovered/Resolved]
